FAERS Safety Report 13696364 (Version 1)
Quarter: 2017Q2

REPORT INFORMATION
  Report Type: Spontaneous
  Country: LU (occurrence: BE)
  Receive Date: 20170628
  Receipt Date: 20170628
  Transmission Date: 20170830
  Serious: Yes (Other)
  Sender: FDA-Public Use
  Company Number: LU-ASTRAZENECA-2017SE57405

PATIENT
  Age: 50 Year
  Sex: Male

DRUGS (7)
  1. SOFRASOLONE [Concomitant]
     Active Substance: FRAMYCETIN SULFATE\NAPHAZOLINE NITRATE\PREDNISOLONE ACETATE
     Dosage: 2 OR 3 TIMES A DAY OR IN THE EVENING, SINCE BEFORE 2013
  2. METFORMAX [Concomitant]
     Active Substance: METFORMIN HYDROCHLORIDE
     Indication: TYPE 2 DIABETES MELLITUS
     Route: 048
     Dates: start: 20130819
  3. PANTOMED [Concomitant]
     Active Substance: DEXPANTHENOL
     Indication: GASTROOESOPHAGEAL REFLUX DISEASE
     Dosage: DAILY
     Route: 048
     Dates: start: 20151126
  4. SEVIKAR [Concomitant]
     Active Substance: AMLODIPINE BESYLATE\OLMESARTAN MEDOXOMIL
     Indication: HYPERTENSION
     Dosage: DAILY
     Route: 048
     Dates: start: 20170302
  5. BYDUREON [Suspect]
     Active Substance: EXENATIDE
     Indication: TYPE 2 DIABETES MELLITUS
     Route: 065
     Dates: start: 20140714
  6. CRESTOR [Concomitant]
     Active Substance: ROSUVASTATIN CALCIUM
     Indication: HYPERCHOLESTEROLAEMIA
     Dosage: DAILY, SINCE BEFORE 2013
     Route: 048
  7. CONCOR [Concomitant]
     Active Substance: BISOPROLOL FUMARATE
     Indication: HYPERTENSION
     Dosage: DAILY
     Route: 048
     Dates: start: 20170302

REACTIONS (2)
  - Serum ferritin decreased [Not Recovered/Not Resolved]
  - Hypertensive crisis [Unknown]

NARRATIVE: CASE EVENT DATE: 201703
